FAERS Safety Report 8137998-4 (Version None)
Quarter: 2012Q1

REPORT INFORMATION
  Report Type: 
  Country: None (occurrence: None)
  Receive Date: 20120215
  Receipt Date: 20120213
  Transmission Date: 20120608
  Serious: Yes (Hospitalization, Other)
  Sender: FDA-Public Use
  Company Number: US-PFIZER INC-2012038867

PATIENT
  Sex: Female
  Weight: 72.109 kg

DRUGS (2)
  1. LIPITOR [Suspect]
     Indication: BLOOD CHOLESTEROL INCREASED
     Dosage: 20 MG, DAILY
     Route: 048
     Dates: start: 19980101
  2. SYNTHROID [Concomitant]
     Indication: THYROID DISORDER
     Dosage: 0.2 MG, 1X/DAY

REACTIONS (4)
  - MYOCARDIAL INFARCTION [None]
  - PERIPHERAL ARTERIAL OCCLUSIVE DISEASE [None]
  - PAIN IN EXTREMITY [None]
  - FEELING ABNORMAL [None]
